FAERS Safety Report 23813217 (Version 1)
Quarter: 2024Q2

REPORT INFORMATION
  Report Type: Spontaneous
  Country: AU (occurrence: None)
  Receive Date: 20240503
  Receipt Date: 20240503
  Transmission Date: 20240716
  Serious: Yes (Other)
  Sender: FDA-Public Use
  Company Number: AU-PFIZER INC-PV202400056536

PATIENT
  Age: 3 Decade
  Sex: Female

DRUGS (1)
  1. METHOTREXATE [Suspect]
     Active Substance: METHOTREXATE
     Indication: Liver sarcoidosis
     Dosage: 20 MG, WEEKLY

REACTIONS (3)
  - Toxicity to various agents [Recovered/Resolved]
  - Hepatic enzyme increased [Recovered/Resolved]
  - Product use in unapproved indication [Recovered/Resolved]
